FAERS Safety Report 24363901 (Version 1)
Quarter: 2024Q3

REPORT INFORMATION
  Report Type: Spontaneous
  Country: US (occurrence: US)
  Receive Date: 20240925
  Receipt Date: 20240925
  Transmission Date: 20241016
  Serious: Yes (Life-Threatening, Other)
  Sender: MYLAN
  Company Number: US-MYLANLABS-2024M1086107

PATIENT

DRUGS (2)
  1. CROMOLYN SODIUM [Suspect]
     Active Substance: CROMOLYN SODIUM
     Indication: Product used for unknown indication
     Dosage: UNK
     Route: 065
  2. XOLAIR [Concomitant]
     Active Substance: OMALIZUMAB
     Dosage: UNK, Q2W
     Route: 065

REACTIONS (9)
  - Anaphylactic shock [Unknown]
  - Anaphylactic reaction [Unknown]
  - Spinal operation [Unknown]
  - Near death experience [Unknown]
  - Loss of consciousness [Unknown]
  - Sepsis [Unknown]
  - Feeling abnormal [Unknown]
  - Stress [Unknown]
  - Anxiety [Unknown]
